FAERS Safety Report 8358679-8 (Version None)
Quarter: 2012Q2

REPORT INFORMATION
  Report Type: 
  Country: None (occurrence: None)
  Receive Date: 20120514
  Receipt Date: 20120507
  Transmission Date: 20120825
  Serious: Yes (Hospitalization, Disabling)
  Sender: FDA-Public Use
  Company Number: US-MERCK-1112USA01776

PATIENT
  Age: 47 Year
  Sex: Female
  Weight: 93 kg

DRUGS (25)
  1. FOSAMAX [Suspect]
     Indication: OSTEOPOROSIS
     Route: 048
     Dates: start: 19991123
  2. FOSAMAX [Suspect]
     Route: 048
     Dates: start: 20071121, end: 20100101
  3. FOSAMAX [Suspect]
     Route: 048
     Dates: start: 20001101
  4. FOSAMAX [Suspect]
     Route: 048
     Dates: start: 20010501
  5. FOSAMAX [Suspect]
     Route: 048
     Dates: start: 20001101
  6. FOSAMAX [Suspect]
     Route: 048
     Dates: start: 20071121, end: 20100101
  7. FOSAMAX [Suspect]
     Route: 048
     Dates: start: 20000601
  8. CORTICOSTEROIDS (UNSPECIFIED) [Concomitant]
     Indication: RHEUMATOID ARTHRITIS
     Route: 051
  9. ASTELIN [Concomitant]
     Indication: RHINITIS ALLERGIC
     Route: 065
     Dates: start: 20050701
  10. ALENDRONATE SODIUM [Suspect]
     Route: 048
     Dates: start: 20100901, end: 20110101
  11. ALENDRONATE SODIUM [Suspect]
     Route: 048
     Dates: start: 20100901, end: 20110101
  12. FOSAMAX [Suspect]
     Indication: OSTEOPENIA
     Route: 048
     Dates: start: 19991123
  13. ALENDRONATE SODIUM [Suspect]
     Indication: OSTEOPOROSIS
     Route: 048
     Dates: start: 20080301
  14. VITAMIN D (UNSPECIFIED) [Concomitant]
     Indication: OSTEOPOROSIS
     Route: 065
  15. CALCIUM (UNSPECIFIED) [Concomitant]
     Indication: OSTEOPOROSIS
     Route: 065
  16. FOSAMAX [Suspect]
     Route: 048
     Dates: start: 20000601
  17. FOSAMAX [Suspect]
     Route: 048
     Dates: start: 20010501
  18. FOSAMAX [Suspect]
     Route: 048
     Dates: start: 20100101, end: 20110101
  19. PREDNISONE [Concomitant]
     Indication: RHEUMATOID ARTHRITIS
     Route: 065
  20. ALENDRONATE SODIUM [Suspect]
     Indication: OSTEOPENIA
     Route: 048
     Dates: start: 20080301
  21. FOSAMAX [Suspect]
     Route: 048
     Dates: start: 20100101, end: 20110101
  22. ENBREL [Concomitant]
     Indication: RHEUMATOID ARTHRITIS
     Route: 065
     Dates: start: 20020101
  23. METHOTREXATE [Concomitant]
     Indication: RHEUMATOID ARTHRITIS
     Route: 065
     Dates: start: 20020101
  24. SULFASALAZINE [Concomitant]
     Indication: RHEUMATOID ARTHRITIS
     Route: 065
     Dates: start: 19990101
  25. [COMPOSITION UNSPECIFIED] [Concomitant]
     Indication: SLEEP DISORDER
     Route: 065
     Dates: start: 20110701

REACTIONS (52)
  - ESSENTIAL HYPERTENSION [None]
  - URINARY INCONTINENCE [None]
  - SYNOVITIS [None]
  - HYPERSOMNIA [None]
  - GAIT DISTURBANCE [None]
  - LOW TURNOVER OSTEOPATHY [None]
  - CARDIAC FAILURE CONGESTIVE [None]
  - DRUG ADMINISTRATION ERROR [None]
  - RESTLESS LEGS SYNDROME [None]
  - PARAESTHESIA [None]
  - URINE LEUKOCYTE ESTERASE [None]
  - LIMB DEFORMITY [None]
  - FALL [None]
  - FEMUR FRACTURE [None]
  - CELLULITIS [None]
  - GLUCOSE TOLERANCE IMPAIRED [None]
  - SMEAR CERVIX ABNORMAL [None]
  - OSTEOARTHRITIS [None]
  - DEPRESSION [None]
  - DYSPEPSIA [None]
  - SKELETAL INJURY [None]
  - VENOUS INSUFFICIENCY [None]
  - JOINT EFFUSION [None]
  - FOOT DEFORMITY [None]
  - ANXIETY [None]
  - DYSPNOEA [None]
  - OSTEONECROSIS [None]
  - STRESS FRACTURE [None]
  - SLEEP DISORDER [None]
  - MUSCULOSKELETAL DEFORMITY [None]
  - RHEUMATOID ARTHRITIS [None]
  - CONTUSION [None]
  - WEIGHT INCREASED [None]
  - OEDEMA PERIPHERAL [None]
  - MEMORY IMPAIRMENT [None]
  - HYPOKALAEMIA [None]
  - OBSTRUCTIVE AIRWAYS DISORDER [None]
  - LIGAMENT SPRAIN [None]
  - BLOOD UREA NITROGEN/CREATININE RATIO INCREASED [None]
  - CHRONIC OBSTRUCTIVE PULMONARY DISEASE [None]
  - INSOMNIA [None]
  - SKIN EXFOLIATION [None]
  - OFF LABEL USE [None]
  - TINEA PEDIS [None]
  - HEADACHE [None]
  - IMPAIRED HEALING [None]
  - BACTERIAL TEST POSITIVE [None]
  - COLITIS [None]
  - COUGH [None]
  - RASH [None]
  - TOOTH DISORDER [None]
  - MUSCLE SPASMS [None]
